FAERS Safety Report 10010213 (Version 3)
Quarter: 2014Q1

REPORT INFORMATION
  Report Type: Spontaneous
  Country: US (occurrence: US)
  Receive Date: 20140313
  Receipt Date: 20140321
  Transmission Date: 20141002
  Serious: Yes (Death, Life-Threatening, Hospitalization, Disabling, Other)
  Sender: FDA-Public Use
  Company Number: US-009507513-1403USA005451

PATIENT
  Sex: Female

DRUGS (1)
  1. INTEGRILIN [Suspect]
     Dosage: UNK
     Dates: start: 201403

REACTIONS (5)
  - Death [Fatal]
  - Swan ganz catheter placement [Unknown]
  - Coronary artery bypass [Unknown]
  - Vascular graft [Unknown]
  - Stent placement [Unknown]
